FAERS Safety Report 16953262 (Version 2)
Quarter: 2020Q3

REPORT INFORMATION
  Report Type: Report from Study
  Country: None (occurrence: PT)
  Receive Date: 20191023
  Receipt Date: 20200925
  Transmission Date: 20201102
  Serious: Yes (Hospitalization, Other)
  Sender: FDA-Public Use
  Company Number: PT-BAUSCH-BL-2019-057940

PATIENT
  Age: 61 Year
  Sex: Female

DRUGS (6)
  1. NEBIVOLOL. [Suspect]
     Active Substance: NEBIVOLOL
     Indication: HYPERTENSION
     Route: 065
  2. NIFEDIPINE. [Suspect]
     Active Substance: NIFEDIPINE
     Indication: HYPERTENSION
     Dosage: UPTO 60 MG
     Route: 065
  3. RILMENIDINE [Suspect]
     Active Substance: RILMENIDINE
     Indication: HYPERTENSION
     Route: 065
  4. IRBESARTAN PLUS HYDROCHLOROTHIAZIDE [Suspect]
     Active Substance: HYDROCHLOROTHIAZIDE\IRBESARTAN
     Indication: HYPERTENSION
     Dosage: 300 MG/12.5 MG
     Route: 065
  5. CLONIDINE. [Suspect]
     Active Substance: CLONIDINE
     Indication: HYPERTENSION
     Dosage: 0.15 MILLIGRAM, 3 TIMES A DAY
     Route: 065
  6. LOSARTAN. [Concomitant]
     Active Substance: LOSARTAN
     Indication: PRODUCT USED FOR UNKNOWN INDICATION
     Route: 065

REACTIONS (7)
  - Primary hyperaldosteronism [Unknown]
  - Blood aldosterone increased [Unknown]
  - Investigation [Unknown]
  - Laboratory test interference [Recovered/Resolved]
  - Ill-defined disorder [Recovering/Resolving]
  - Renin decreased [Unknown]
  - Fatigue [Unknown]
